FAERS Safety Report 4577849-8 (Version None)
Quarter: 2005Q1

REPORT INFORMATION
  Report Type: 
  Country: None (occurrence: None)
  Receive Date: 20050127
  Receipt Date: 20040830
  Transmission Date: 20050727
  Serious: No
  Sender: FDA-Public Use
  Company Number: USA040876794

PATIENT
  Age: 15 Year
  Sex: Male
  Weight: 37.195 kg

DRUGS (3)
  1. STRATTERA [Suspect]
     Dosage: 54 MG DAY
     Dates: start: 20030801, end: 20040101
  2. RITALIN [Concomitant]
  3. CONCERTA [Concomitant]

REACTIONS (3)
  - IMPULSIVE BEHAVIOUR [None]
  - LOGORRHOEA [None]
  - NERVOUSNESS [None]
